FAERS Safety Report 14514311 (Version 1)
Quarter: 2018Q1

REPORT INFORMATION
  Report Type: Spontaneous
  Country: DE (occurrence: DE)
  Receive Date: 20180209
  Receipt Date: 20180209
  Transmission Date: 20180509
  Serious: Yes (Life-Threatening, Other)
  Sender: FDA-Public Use
  Company Number: DE-SHIRE-DE201737276

PATIENT

DRUGS (8)
  1. CINRYZE [Suspect]
     Active Substance: HUMAN C1-ESTERASE INHIBITOR
     Indication: PRURITUS
  2. UTROGEST [Concomitant]
     Active Substance: PROGESTERONE
     Indication: MENOPAUSE
     Dosage: 100 MG TABLET, 1X/DAY:QD
     Route: 065
     Dates: start: 201106
  3. CINRYZE [Suspect]
     Active Substance: HUMAN C1-ESTERASE INHIBITOR
     Indication: LOCALISED OEDEMA
  4. CINRYZE [Suspect]
     Active Substance: HUMAN C1-ESTERASE INHIBITOR
     Indication: HISTAMINE INTOLERANCE
  5. CINRYZE [Suspect]
     Active Substance: HUMAN C1-ESTERASE INHIBITOR
     Indication: DRY EYE
  6. UTROGEST [Concomitant]
     Active Substance: PROGESTERONE
     Dosage: 100 MG TABLET, 1X/DAY:QD
     Route: 065
     Dates: start: 201207
  7. CINRYZE [Suspect]
     Active Substance: HUMAN C1-ESTERASE INHIBITOR
     Indication: ABDOMINAL PAIN
     Dosage: 1000 UNITS, UNK
     Route: 042
     Dates: start: 20111126, end: 20130626
  8. CINRYZE [Suspect]
     Active Substance: HUMAN C1-ESTERASE INHIBITOR
     Indication: COUGH

REACTIONS (21)
  - Insomnia [Recovered/Resolved]
  - Arthralgia [Recovered/Resolved]
  - Nausea [Recovered/Resolved]
  - Disturbance in attention [Recovered/Resolved]
  - Diplegia [Recovered/Resolved]
  - Abdominal pain [Recovered/Resolved]
  - Monoplegia [Recovered/Resolved]
  - Myalgia [Recovered/Resolved]
  - Skin irritation [Recovered/Resolved]
  - Eyelid oedema [Recovered/Resolved]
  - Heart rate increased [Recovered/Resolved]
  - Gastrointestinal disorder [Recovered/Resolved]
  - Vascular pain [Recovered/Resolved]
  - Cough [Recovered/Resolved]
  - Pruritus [Recovered/Resolved]
  - Headache [Recovered/Resolved]
  - Oedema peripheral [Recovered/Resolved]
  - Swollen tongue [Recovered/Resolved]
  - Aphthous ulcer [Recovered/Resolved]
  - Pharyngeal oedema [Recovered/Resolved]
  - Coagulopathy [Recovered/Resolved]

NARRATIVE: CASE EVENT DATE: 201203
